FAERS Safety Report 5096244-9 (Version None)
Quarter: 2006Q3

REPORT INFORMATION
  Report Type: 
  Country: None (occurrence: None)
  Receive Date: 20060905
  Receipt Date: 20060831
  Transmission Date: 20061208
  Serious: Yes (Death)
  Sender: FDA-Public Use
  Company Number: IL-NOVOPROD-256531

PATIENT
  Age: 44 Year
  Sex: Male

DRUGS (1)
  1. NOVOSEVEN [Suspect]
     Indication: HAEMORRHAGE
     Dosage: 9.6 MG, UNK
     Dates: start: 20060815, end: 20060815

REACTIONS (3)
  - BRAIN DEATH [None]
  - LEG AMPUTATION [None]
  - SEPSIS [None]
